FAERS Safety Report 5101578-5 (Version None)
Quarter: 2006Q3

REPORT INFORMATION
  Report Type: 
  Country: None (occurrence: None)
  Receive Date: 20060911
  Receipt Date: 20060901
  Transmission Date: 20061208
  Serious: Yes (Hospitalization)
  Sender: FDA-Public Use
  Company Number: 2006UW17309

PATIENT
  Age: 25174 Day
  Sex: Male
  Weight: 74.8 kg

DRUGS (12)
  1. IRESSA [Suspect]
     Indication: SQUAMOUS CELL CARCINOMA OF SKIN
     Route: 048
     Dates: start: 20060728
  2. HYDROCODONE BITARTRATE [Concomitant]
     Indication: PAIN
     Dosage: 7.5/500 1-2 TABS AS NEEDED
     Dates: start: 20060714
  3. DROMADOL [Concomitant]
     Indication: PAIN
     Dosage: AS NEEDED
     Dates: start: 20060627
  4. LIDOCAINE [Concomitant]
     Indication: PAIN
     Route: 061
     Dates: start: 20060627
  5. VYTORIN [Concomitant]
     Indication: BLOOD CHOLESTEROL INCREASED
     Dates: start: 20051101
  6. CENTRUM SILVER [Concomitant]
     Indication: VITAMIN SUPPLEMENTATION
     Dates: start: 20030101
  7. NAPROXENE [Concomitant]
     Dates: start: 20050501
  8. CITRACAL [Concomitant]
     Indication: MINERAL SUPPLEMENTATION
     Dates: start: 20030101
  9. DULCOLAX [Concomitant]
     Indication: CONSTIPATION
     Dates: start: 20060501, end: 20060727
  10. SENNA S [Concomitant]
     Indication: CONSTIPATION
     Dates: start: 20060728
  11. CLEOCIN HYDROCHLORIDE [Concomitant]
     Indication: RASH
     Dosage: AS NEEDED
     Dates: start: 20060728
  12. MAALOX FAST BLOCKER [Concomitant]
     Indication: DYSPEPSIA
     Dates: start: 20060814

REACTIONS (2)
  - ABDOMINAL PAIN [None]
  - SURGERY [None]
